FAERS Safety Report 17190342 (Version 7)
Quarter: 2022Q2

REPORT INFORMATION
  Report Type: Spontaneous
  Country: CA (occurrence: None)
  Receive Date: 20191223
  Receipt Date: 20220422
  Transmission Date: 20220720
  Serious: Yes (Death, Other)
  Sender: FDA-Public Use
  Company Number: CA-ORION CORPORATION ORION PHARMA-TREX2019-6054

PATIENT
  Age: 36 Year
  Sex: Female

DRUGS (56)
  1. METHOTREXATE [Suspect]
     Active Substance: METHOTREXATE
     Indication: Rheumatoid arthritis
     Route: 065
  2. DOXYCYCLINE HYCLATE [Suspect]
     Active Substance: DOXYCYCLINE HYCLATE
     Indication: Product used for unknown indication
     Route: 065
  3. ENBREL [Suspect]
     Active Substance: ETANERCEPT
     Indication: Rheumatoid arthritis
     Route: 058
  4. SULFASALAZINE [Suspect]
     Active Substance: SULFASALAZINE
     Indication: Systemic lupus erythematosus
     Route: 065
  5. SULFASALAZINE [Suspect]
     Active Substance: SULFASALAZINE
     Indication: Rheumatoid arthritis
     Route: 065
  6. SULFASALAZINE [Suspect]
     Active Substance: SULFASALAZINE
     Route: 065
  7. SULFASALAZINE [Suspect]
     Active Substance: SULFASALAZINE
     Route: 065
  8. SULFASALAZINE [Suspect]
     Active Substance: SULFASALAZINE
     Route: 065
  9. SULFASALAZINE [Suspect]
     Active Substance: SULFASALAZINE
     Route: 065
  10. ACTEMRA [Suspect]
     Active Substance: TOCILIZUMAB
     Indication: Rheumatoid arthritis
     Route: 065
  11. GOLD SODIUM THIOMALATE [Suspect]
     Active Substance: GOLD SODIUM THIOMALATE
     Indication: Systemic lupus erythematosus
     Route: 065
  12. GOLD SODIUM THIOMALATE [Suspect]
     Active Substance: GOLD SODIUM THIOMALATE
     Indication: Rheumatoid arthritis
     Route: 065
  13. HUMIRA [Suspect]
     Active Substance: ADALIMUMAB
     Indication: Rheumatoid arthritis
     Route: 058
  14. HUMIRA [Suspect]
     Active Substance: ADALIMUMAB
     Route: 065
  15. HUMIRA [Suspect]
     Active Substance: ADALIMUMAB
     Route: 065
  16. HUMIRA [Suspect]
     Active Substance: ADALIMUMAB
     Route: 058
  17. HYDROXYCHLOROQUINE [Suspect]
     Active Substance: HYDROXYCHLOROQUINE
     Indication: Rheumatoid arthritis
     Route: 065
  18. HYDROXYCHLOROQUINE [Suspect]
     Active Substance: HYDROXYCHLOROQUINE
     Route: 065
  19. HYDROXYCHLOROQUINE SULFATE [Suspect]
     Active Substance: HYDROXYCHLOROQUINE SULFATE
     Indication: Rheumatoid arthritis
     Route: 065
  20. HYDROXYCHLOROQUINE SULFATE [Suspect]
     Active Substance: HYDROXYCHLOROQUINE SULFATE
     Route: 065
  21. HYDROXYCHLOROQUINE SULFATE [Suspect]
     Active Substance: HYDROXYCHLOROQUINE SULFATE
     Route: 065
  22. LEFLUNOMIDE [Suspect]
     Active Substance: LEFLUNOMIDE
     Indication: Rheumatoid arthritis
     Route: 065
  23. LEFLUNOMIDE [Suspect]
     Active Substance: LEFLUNOMIDE
     Route: 065
  24. LEFLUNOMIDE [Suspect]
     Active Substance: LEFLUNOMIDE
     Route: 065
  25. ORENCIA [Suspect]
     Active Substance: ABATACEPT
     Indication: Rheumatoid arthritis
     Route: 065
  26. ORENCIA [Suspect]
     Active Substance: ABATACEPT
     Route: 065
  27. REMICADE [Suspect]
     Active Substance: INFLIXIMAB
     Indication: Systemic lupus erythematosus
     Route: 065
  28. REMICADE [Suspect]
     Active Substance: INFLIXIMAB
     Indication: Rheumatoid arthritis
     Route: 042
  29. REMICADE [Suspect]
     Active Substance: INFLIXIMAB
     Route: 042
  30. REMICADE [Suspect]
     Active Substance: INFLIXIMAB
     Route: 042
  31. REMICADE [Suspect]
     Active Substance: INFLIXIMAB
     Route: 065
  32. REMICADE [Suspect]
     Active Substance: INFLIXIMAB
     Route: 042
  33. REMICADE [Suspect]
     Active Substance: INFLIXIMAB
     Route: 065
  34. REMICADE [Suspect]
     Active Substance: INFLIXIMAB
     Route: 065
  35. REMICADE [Suspect]
     Active Substance: INFLIXIMAB
     Route: 065
  36. RITUXAN [Suspect]
     Active Substance: RITUXIMAB
     Indication: Systemic lupus erythematosus
     Route: 065
  37. RITUXAN [Suspect]
     Active Substance: RITUXIMAB
     Indication: Rheumatoid arthritis
     Route: 042
  38. RITUXAN [Suspect]
     Active Substance: RITUXIMAB
     Route: 065
  39. RITUXAN [Suspect]
     Active Substance: RITUXIMAB
     Route: 065
  40. RITUXIMAB [Suspect]
     Active Substance: RITUXIMAB
     Indication: Rheumatoid arthritis
     Route: 065
  41. RITUXIMAB [Suspect]
     Active Substance: RITUXIMAB
     Route: 065
  42. RITUXIMAB [Suspect]
     Active Substance: RITUXIMAB
     Route: 065
  43. RITUXIMAB [Suspect]
     Active Substance: RITUXIMAB
     Route: 065
  44. RITUXIMAB [Suspect]
     Active Substance: RITUXIMAB
     Route: 065
  45. RITUXIMAB [Suspect]
     Active Substance: RITUXIMAB
     Route: 065
  46. RITUXIMAB [Suspect]
     Active Substance: RITUXIMAB
     Route: 042
  47. RITUXIMAB [Suspect]
     Active Substance: RITUXIMAB
     Route: 065
  48. RITUXIMAB [Suspect]
     Active Substance: RITUXIMAB
     Route: 065
  49. RITUXIMAB;URELUMAB [Concomitant]
     Route: 065
  50. SIMPONI [Concomitant]
     Active Substance: GOLIMUMAB
     Indication: Rheumatoid arthritis
     Route: 065
  51. SIMPONI [Concomitant]
     Active Substance: GOLIMUMAB
     Route: 065
  52. SIMPONI [Concomitant]
     Active Substance: GOLIMUMAB
     Route: 065
  53. SIMPONI [Concomitant]
     Active Substance: GOLIMUMAB
     Route: 058
  54. XELJANZ [Concomitant]
     Active Substance: TOFACITINIB CITRATE
     Route: 065
  55. XELJANZ [Concomitant]
     Active Substance: TOFACITINIB CITRATE
     Route: 065
  56. URELUMAB [Concomitant]
     Active Substance: URELUMAB
     Route: 065

REACTIONS (25)
  - Death [Fatal]
  - Drug ineffective [Fatal]
  - Intentional product use issue [Fatal]
  - Off label use [Fatal]
  - Apparent death [Fatal]
  - Myocardial infarction [Fatal]
  - Sepsis [Fatal]
  - Intestinal sepsis [Fatal]
  - Renal failure [Fatal]
  - Pulmonary thrombosis [Fatal]
  - Pulmonary embolism [Fatal]
  - Deep vein thrombosis [Fatal]
  - Thrombosis [Fatal]
  - Rheumatoid arthritis [Fatal]
  - Osteoarthritis [Fatal]
  - Diverticulitis [Fatal]
  - Terminal state [Fatal]
  - Bone erosion [Fatal]
  - C-reactive protein abnormal [Fatal]
  - C-reactive protein increased [Fatal]
  - Joint swelling [Fatal]
  - Pain [Fatal]
  - Red blood cell sedimentation rate increased [Fatal]
  - Rheumatoid factor positive [Fatal]
  - Synovitis [Fatal]
